FAERS Safety Report 8215086-6 (Version None)
Quarter: 2012Q1

REPORT INFORMATION
  Report Type: 
  Country: None (occurrence: None)
  Receive Date: 20120316
  Receipt Date: 20120308
  Transmission Date: 20120608
  Serious: Yes (Hospitalization, Other)
  Sender: FDA-Public Use
  Company Number: PHHY2012SG021323

PATIENT
  Age: 55 Year
  Sex: Male

DRUGS (2)
  1. CLOXACILLIN SODIUM [Suspect]
  2. AMOXICILLIN AND CLAVULANATE POTASSIUM [Suspect]

REACTIONS (4)
  - STEVENS-JOHNSON SYNDROME [None]
  - DEHYDRATION [None]
  - TOXIC EPIDERMAL NECROLYSIS [None]
  - RENAL IMPAIRMENT [None]
